FAERS Safety Report 15619789 (Version 5)
Quarter: 2019Q4

REPORT INFORMATION
  Report Type: Report from Study
  Country: US (occurrence: US)
  Receive Date: 20181115
  Receipt Date: 20191213
  Transmission Date: 20200122
  Serious: Yes (Other)
  Sender: FDA-Public Use
  Company Number: PHEH2018US047520

PATIENT
  Sex: Female

DRUGS (2)
  1. COSENTYX [Suspect]
     Active Substance: SECUKINUMAB
     Indication: PSORIATIC ARTHROPATHY
     Dosage: 300 MG, QMO (INJECT 300 MG (2 PENS) SUBCUTANEOUSLY EVERY 4 WEEKS)
     Route: 058
     Dates: start: 20170828
  2. DOXYCYCLINE HYCLATE. [Concomitant]
     Active Substance: DOXYCYCLINE HYCLATE
     Indication: INFLAMMATION
     Dosage: 100 MG, BID
     Route: 065

REACTIONS (15)
  - Chills [Unknown]
  - Skin plaque [Not Recovered/Not Resolved]
  - Fatigue [Unknown]
  - Diarrhoea [Unknown]
  - Sneezing [Unknown]
  - Infection [Unknown]
  - Urinary tract infection [Unknown]
  - Nausea [Unknown]
  - Upper respiratory tract infection [Unknown]
  - Pyrexia [Unknown]
  - Psoriatic arthropathy [Unknown]
  - Skin exfoliation [Not Recovered/Not Resolved]
  - Malaise [Unknown]
  - Nasopharyngitis [Unknown]
  - Cough [Unknown]
